FAERS Safety Report 9171829 (Version 1)
Quarter: 2013Q1

REPORT INFORMATION
  Report Type: Spontaneous
  Country: JP (occurrence: JP)
  Receive Date: 20130319
  Receipt Date: 20130319
  Transmission Date: 20140127
  Serious: Yes (Other)
  Sender: FDA-Public Use
  Company Number: JP-NAPPMUNDI-GBR-2013-0013460

PATIENT
  Age: 78 Year
  Sex: Male

DRUGS (6)
  1. OXYCODONE HCL PR TABLET [Suspect]
     Indication: CANCER PAIN
     Dosage: 42 MG, DAILY
     Route: 048
     Dates: start: 20130306, end: 20130306
  2. OXYCODONE HCL PR TABLET [Suspect]
     Dosage: 56 MG, DAILY
     Route: 048
     Dates: start: 20130305, end: 20130305
  3. OXYCODONE HCL PR TABLET [Suspect]
     Dosage: 70 MG, DAILY
     Dates: start: 20130304, end: 20130304
  4. OXYCODONE HCL IR POWDER 0.5% [Suspect]
     Indication: CANCER PAIN
     Dosage: 5 MG, DAILY
     Route: 048
     Dates: start: 20130128, end: 20130222
  5. MAGMITT [Concomitant]
  6. CALONAL [Concomitant]

REACTIONS (7)
  - Body temperature increased [Unknown]
  - Chills [Unknown]
  - Sepsis [Recovering/Resolving]
  - Amylase increased [Recovering/Resolving]
  - Blood alkaline phosphatase increased [Recovering/Resolving]
  - Gamma-glutamyltransferase increased [Recovering/Resolving]
  - Blood pressure decreased [Not Recovered/Not Resolved]
